FAERS Safety Report 17334395 (Version 1)
Quarter: 2020Q1

REPORT INFORMATION
  Report Type: Spontaneous
  Country: PT (occurrence: PT)
  Receive Date: 20200128
  Receipt Date: 20200128
  Transmission Date: 20200409
  Serious: Yes (Hospitalization)
  Sender: FDA-Public Use
  Company Number: PT-TEVA-2020-PT-1174543

PATIENT
  Age: 56 Year
  Sex: Female

DRUGS (2)
  1. CISPLATIN. [Suspect]
     Active Substance: CISPLATIN
     Indication: GASTROINTESTINAL CANCER METASTATIC
     Dosage: 182MG CYCLE - 1ST CYCLE
     Route: 042
     Dates: start: 20191212, end: 20191212
  2. FLUOROURACIL. [Suspect]
     Active Substance: FLUOROURACIL
     Indication: GASTROINTESTINAL CANCER METASTATIC
     Dosage: 1819MG 5 DAY PUMP - 1ST CYCLE
     Route: 042
     Dates: start: 20191212, end: 20191217

REACTIONS (2)
  - Febrile neutropenia [Unknown]
  - Mucosal inflammation [Unknown]

NARRATIVE: CASE EVENT DATE: 20191219
